FAERS Safety Report 17098680 (Version 1)
Quarter: 2019Q4

REPORT INFORMATION
  Report Type: Spontaneous
  Country: US (occurrence: US)
  Receive Date: 20191129
  Receipt Date: 20191129
  Transmission Date: 20200122
  Serious: No
  Sender: FDA-Public Use
  Company Number: None

PATIENT
  Age: 22 Year
  Sex: Female
  Weight: 108 kg

DRUGS (9)
  1. LABATOLOL [Concomitant]
  2. ZANTAC [Suspect]
     Active Substance: RANITIDINE HYDROCHLORIDE
     Indication: DYSPEPSIA
  3. CARAFATE [Concomitant]
     Active Substance: SUCRALFATE
  4. CEPHALEXIN. [Concomitant]
     Active Substance: CEPHALEXIN
  5. BUTAL/ACETAMN/CF [Concomitant]
  6. RANITIDINE. [Concomitant]
     Active Substance: RANITIDINE
  7. VITAMINS [Concomitant]
     Active Substance: VITAMINS
  8. ZANTAC [Suspect]
     Active Substance: RANITIDINE HYDROCHLORIDE
     Indication: GASTROOESOPHAGEAL REFLUX DISEASE
  9. ZANTAC [Concomitant]
     Active Substance: RANITIDINE HYDROCHLORIDE

REACTIONS (2)
  - Influenza like illness [None]
  - Exposure during pregnancy [None]

NARRATIVE: CASE EVENT DATE: 20191119
